FAERS Safety Report 6817345-8 (Version None)
Quarter: 2010Q3

REPORT INFORMATION
  Report Type: 
  Country: None (occurrence: None)
  Receive Date: 20100706
  Receipt Date: 20100625
  Transmission Date: 20110219
  Serious: Yes (Disabling)
  Sender: FDA-Public Use
  Company Number: US-ROCHE-712074

PATIENT
  Sex: Female
  Weight: 68 kg

DRUGS (6)
  1. BONIVA [Suspect]
     Indication: PRODUCT USED FOR UNKNOWN INDICATION
     Route: 048
     Dates: start: 20100216
  2. FOSAMAX [Suspect]
     Indication: PRODUCT USED FOR UNKNOWN INDICATION
     Route: 048
     Dates: start: 20090623
  3. COZAAR [Concomitant]
  4. ZETIA [Concomitant]
     Dosage: DRUG REPORTED AS : ZITIA
  5. DOXAZOSIN MESYLATE [Concomitant]
  6. SYNTHROID [Concomitant]

REACTIONS (9)
  - ASTHENIA [None]
  - DECREASED APPETITE [None]
  - DRY MOUTH [None]
  - DYSPEPSIA [None]
  - DYSSTASIA [None]
  - GAIT DISTURBANCE [None]
  - PAIN [None]
  - POLYARTHRITIS [None]
  - THIRST [None]
